FAERS Safety Report 19447661 (Version 1)
Quarter: 2021Q2

REPORT INFORMATION
  Report Type: Spontaneous
  Country: US (occurrence: US)
  Receive Date: 20210622
  Receipt Date: 20210622
  Transmission Date: 20210717
  Serious: No
  Sender: FDA-Public Use
  Company Number: US-THERAPEUTICSMD-2021TMD01759

PATIENT
  Sex: Female
  Weight: 72.58 kg

DRUGS (11)
  1. POTASSIUM [Concomitant]
     Active Substance: POTASSIUM
  2. FISH OIL [Concomitant]
     Active Substance: FISH OIL
  3. UNSPECIFIED MEDICATION FOR LIVER [Concomitant]
  4. IMVEXXY [Suspect]
     Active Substance: ESTRADIOL
     Dosage: 4 ?G, 2X/WEEK
     Route: 067
     Dates: end: 2020
  5. ANASTROZOLE. [Concomitant]
     Active Substance: ANASTROZOLE
  6. VITAMIN D [Concomitant]
     Active Substance: VITAMIN D NOS
  7. BUPROPION. [Concomitant]
     Active Substance: BUPROPION
  8. CALCIUM [Concomitant]
     Active Substance: CALCIUM
  9. IMVEXXY [Suspect]
     Active Substance: ESTRADIOL
     Dosage: 4 ?G, 2X/WEEK
     Route: 067
     Dates: start: 20210517
  10. IMVEXXY [Suspect]
     Active Substance: ESTRADIOL
     Indication: VULVOVAGINAL DRYNESS
     Dosage: 4 ?G, 1X/DAY
     Route: 067
  11. VITAMIN B12 [Concomitant]
     Active Substance: CYANOCOBALAMIN

REACTIONS (5)
  - Drug ineffective [Not Recovered/Not Resolved]
  - Hypersensitivity [Unknown]
  - Urinary tract infection [Unknown]
  - Bacterial infection [Unknown]
  - Intentional dose omission [Recovered/Resolved]

NARRATIVE: CASE EVENT DATE: 2020
